FAERS Safety Report 16850163 (Version 1)
Quarter: 2019Q4

REPORT INFORMATION
  Report Type: Spontaneous
  Country: US (occurrence: US)
  Receive Date: 20190925
  Receipt Date: 20190925
  Transmission Date: 20200122
  Serious: Yes (Other)
  Sender: FDA-Public Use
  Company Number: None

PATIENT
  Age: 19 Year
  Sex: Female
  Weight: 47.7 kg

DRUGS (1)
  1. GADAVIST [Suspect]
     Active Substance: GADOBUTROL
     Indication: ARRHYTHMIA
     Dosage: ?          OTHER FREQUENCY:ONCE;?
     Route: 040
     Dates: start: 20190327

REACTIONS (4)
  - Paraesthesia [None]
  - Supraventricular extrasystoles [None]
  - Ventricular extrasystoles [None]
  - Dyspnoea [None]

NARRATIVE: CASE EVENT DATE: 20190327
